FAERS Safety Report 8002040-2 (Version None)
Quarter: 2011Q4

REPORT INFORMATION
  Report Type: 
  Country: None (occurrence: None)
  Receive Date: 20111222
  Receipt Date: 20111220
  Transmission Date: 20120403
  Serious: Yes (Other)
  Sender: FDA-Public Use
  Company Number: IL-ABBOTT-11P-082-0885328-00

PATIENT
  Sex: Female

DRUGS (4)
  1. KALETRA [Suspect]
     Indication: PROPHYLAXIS
     Route: 048
     Dates: start: 20111114
  2. KALETRA [Suspect]
     Indication: ANTIVIRAL TREATMENT
  3. KALETRA [Suspect]
     Indication: HUMAN IMMUNODEFICIENCY VIRUS TRANSMISSION
  4. COMBIVIR [Concomitant]
     Indication: ANTIVIRAL TREATMENT
     Route: 048
     Dates: start: 20111114

REACTIONS (1)
  - ABORTION INDUCED [None]
